FAERS Safety Report 5753546-8 (Version None)
Quarter: 2008Q2

REPORT INFORMATION
  Report Type: 
  Country: None (occurrence: None)
  Receive Date: 20080530
  Receipt Date: 20080528
  Transmission Date: 20081010
  Serious: Yes (Other)
  Sender: FDA-Public Use
  Company Number: PH-ABBOTT-08P-128-0452461-00

PATIENT
  Age: 51 Year
  Sex: Female

DRUGS (3)
  1. REDUCTIL 15MG [Suspect]
     Indication: WEIGHT CONTROL
     Route: 048
     Dates: start: 20070130, end: 20070516
  2. REDUCTIL 15MG [Suspect]
     Dates: start: 20070101, end: 20070501
  3. METOPROLOL TARTRATE [Concomitant]
     Indication: HYPERTENSION

REACTIONS (5)
  - INFLAMMATION [None]
  - THYROID NEOPLASM [None]
  - THYROIDITIS [None]
  - THYROXINE FREE INCREASED [None]
  - TRI-IODOTHYRONINE FREE INCREASED [None]
